FAERS Safety Report 5766540-8 (Version None)
Quarter: 2008Q2

REPORT INFORMATION
  Report Type: 
  Country: None (occurrence: None)
  Receive Date: 20080612
  Receipt Date: 20080311
  Transmission Date: 20081010
  Serious: Yes (Hospitalization)
  Sender: FDA-Public Use
  Company Number: JP-ROCHE-548466

PATIENT
  Sex: Male
  Weight: 57.3 kg

DRUGS (7)
  1. CAPECITABINE [Suspect]
     Indication: GASTRIC CANCER
     Dosage: FREQUENCY REPORTED AS D1-D14Q3W.
     Route: 048
     Dates: start: 20070831
  2. TRASTUZUMAB [Suspect]
     Indication: GASTRIC CANCER
     Dosage: DOSAGE FORM REPORTED AS INFUSION.
     Route: 042
     Dates: start: 20070831
  3. TRASTUZUMAB [Suspect]
     Dosage: 30 MINUTES INTRAVENOUS INFUSION. DOSAGE FORM REPORTED AS INFUSION.
     Route: 042
     Dates: start: 20070921
  4. CISPLATIN [Suspect]
     Indication: GASTRIC CANCER
     Dosage: FORM REPORTED AS: INFUSION.
     Route: 042
     Dates: start: 20070831, end: 20071213
  5. FLUNITRAZEPAM [Concomitant]
     Dates: start: 20071211
  6. REBAMIPIDE [Concomitant]
     Dates: start: 20070821
  7. ETIZOLAM [Concomitant]
     Dates: start: 20070815

REACTIONS (2)
  - ABDOMINAL ABSCESS [None]
  - PYREXIA [None]
